FAERS Safety Report 9216894 (Version 1)
Quarter: 2013Q2

REPORT INFORMATION
  Report Type: Spontaneous
  Country: US (occurrence: US)
  Receive Date: 20130408
  Receipt Date: 20130408
  Transmission Date: 20140414
  Serious: Yes (Hospitalization)
  Sender: FDA-Public Use
  Company Number: US-PFIZER INC-2013109239

PATIENT
  Age: 54 Year
  Sex: Female
  Weight: 63.49 kg

DRUGS (6)
  1. GABAPENTIN [Suspect]
     Indication: NEUROPATHY PERIPHERAL
     Dosage: 300 MG, 4X/DAY
  2. GABAPENTIN [Suspect]
     Dosage: UNK, 4X/DAY
  3. TRAZODONE HYDROCHLORIDE [Suspect]
     Dosage: 50 MG, 1X/DAY
     Dates: start: 20130401
  4. TRAZODONE HYDROCHLORIDE [Suspect]
     Dosage: 50 MG, AS NEEDED
     Dates: start: 201304
  5. METOPROLOL [Concomitant]
     Indication: BLOOD PRESSURE ABNORMAL
     Dosage: UNK, 2X/DAY
  6. CYMBALTA [Concomitant]
     Dosage: 30 MG, UNK
     Dates: start: 201304

REACTIONS (6)
  - Victim of abuse [Unknown]
  - Drug ineffective [Unknown]
  - Drug administration error [Unknown]
  - Balance disorder [Unknown]
  - Limb discomfort [Unknown]
  - Somnolence [Unknown]
